FAERS Safety Report 11312251 (Version 1)
Quarter: 2015Q3

REPORT INFORMATION
  Report Type: Spontaneous
  Country: FR (occurrence: FR)
  Receive Date: 20150727
  Receipt Date: 20150727
  Transmission Date: 20151125
  Serious: Yes (Hospitalization)
  Sender: FDA-Public Use
  Company Number: US-ASTRAZENECA-2015SE19901

PATIENT
  Age: 189 Day
  Sex: Female
  Weight: 6.7 kg

DRUGS (4)
  1. SYNAGIS [Suspect]
     Active Substance: PALIVIZUMAB
     Indication: PREMATURE BABY
     Route: 030
     Dates: start: 201410, end: 20150115
  2. SYNAGIS [Suspect]
     Active Substance: PALIVIZUMAB
     Indication: CARDIOMYOPATHY
     Route: 030
     Dates: start: 201410, end: 20150115
  3. SYNAGIS [Suspect]
     Active Substance: PALIVIZUMAB
     Indication: CARDIAC DISORDER
     Route: 030
     Dates: start: 201410, end: 20150115
  4. SYNAGIS [Suspect]
     Active Substance: PALIVIZUMAB
     Indication: ANTIVIRAL PROPHYLAXIS
     Route: 030
     Dates: start: 201410, end: 20150115

REACTIONS (4)
  - Drug ineffective [Unknown]
  - Rhinitis [Recovered/Resolved]
  - Respiratory syncytial virus bronchiolitis [Recovered/Resolved]
  - Respiratory syncytial virus infection [Recovered/Resolved]

NARRATIVE: CASE EVENT DATE: 20141229
